FAERS Safety Report 16975655 (Version 1)
Quarter: 2019Q4

REPORT INFORMATION
  Report Type: Spontaneous
  Country: US (occurrence: US)
  Receive Date: 20191030
  Receipt Date: 20191030
  Transmission Date: 20200122
  Serious: No
  Sender: FDA-Public Use
  Company Number: US-COVIS PHARMA B.V.-2019COV00176

PATIENT
  Sex: Female

DRUGS (2)
  1. ALVESCO [Suspect]
     Active Substance: CICLESONIDE
     Dosage: UNK
     Route: 055
     Dates: start: 2019, end: 2019
  2. ALVESCO [Suspect]
     Active Substance: CICLESONIDE
     Dosage: 160 ?G
     Route: 055
     Dates: start: 2019

REACTIONS (3)
  - Lethargy [Recovered/Resolved]
  - Feeling abnormal [Recovered/Resolved]
  - Incorrect dose administered by product [Not Recovered/Not Resolved]

NARRATIVE: CASE EVENT DATE: 2019
